FAERS Safety Report 5595657-6 (Version None)
Quarter: 2008Q1

REPORT INFORMATION
  Report Type: 
  Country: None (occurrence: None)
  Receive Date: 20080118
  Receipt Date: 20080109
  Transmission Date: 20080703
  Serious: Yes (Other)
  Sender: FDA-Public Use
  Company Number: US-AMGEN-US258710

PATIENT
  Sex: Female
  Weight: 77.2 kg

DRUGS (6)
  1. ENBREL [Suspect]
     Indication: RHEUMATOID ARTHRITIS
     Route: 058
     Dates: start: 20051107
  2. PLAQUENIL [Concomitant]
     Route: 065
     Dates: start: 20050101
  3. PREDNISONE [Concomitant]
     Route: 065
  4. FOLIC ACID [Concomitant]
     Route: 048
  5. LEXAPRO [Concomitant]
     Route: 048
  6. METHOTREXATE [Concomitant]
     Route: 065
     Dates: start: 20050101

REACTIONS (8)
  - ASTHENIA [None]
  - BACK PAIN [None]
  - DRY EYE [None]
  - FATIGUE [None]
  - HYPOAESTHESIA [None]
  - INJECTION SITE IRRITATION [None]
  - LETHARGY [None]
  - LIVER FUNCTION TEST ABNORMAL [None]
